FAERS Safety Report 5549362-2 (Version None)
Quarter: 2007Q4

REPORT INFORMATION
  Report Type: 
  Country: None (occurrence: None)
  Receive Date: 20071128
  Receipt Date: 20061017
  Transmission Date: 20080405
  Serious: Yes (Life-Threatening)
  Sender: FDA-Public Use
  Company Number: 2006SP000007

PATIENT
  Age: 45 Year
  Sex: Female
  Weight: 73.0291 kg

DRUGS (7)
  1. NASONEX [Suspect]
     Indication: MULTIPLE ALLERGIES
     Dosage: 4 DF; ONCE; NAS, NAS
     Route: 045
     Dates: start: 20040126, end: 20040322
  2. NASONEX [Suspect]
     Indication: MULTIPLE ALLERGIES
     Dosage: 4 DF; ONCE; NAS, NAS
     Route: 045
     Dates: start: 20060817, end: 20060817
  3. STEROIDS NOS [Suspect]
     Indication: UPPER RESPIRATORY TRACT INFECTION
     Dosage: IM
     Route: 030
     Dates: start: 20060817
  4. ADVAIR DISKUS 100/50 [Concomitant]
  5. HYDROXYZINE HYDROCHLORIDE [Concomitant]
  6. ZANTAC [Concomitant]
  7. ALLEGRA D 24 HOUR [Concomitant]

REACTIONS (2)
  - ANAPHYLACTIC REACTION [None]
  - NASAL DISCOMFORT [None]
